FAERS Safety Report 5721491-X (Version None)
Quarter: 2008Q2

REPORT INFORMATION
  Report Type: 
  Country: None (occurrence: None)
  Receive Date: 20080424
  Receipt Date: 20080409
  Transmission Date: 20081010
  Serious: Yes (Hospitalization)
  Sender: FDA-Public Use
  Company Number: SPV1-2008-00748

PATIENT
  Age: 80 Year
  Sex: Male
  Weight: 85 kg

DRUGS (8)
  1. ANAGRELIDE HYDROCHLORIDE [Suspect]
     Indication: ESSENTIAL THROMBOCYTHAEMIA
     Dosage: 1 MG,
     Dates: start: 20071022, end: 20080202
  2. ASPEGIC        /00002701/ (ACETYLSALICYLIC ACID) UNKNOWN [Concomitant]
  3. CARDENSIEL         (BISOPROLOL FUMARATE) UNKNOWN [Concomitant]
  4. APROVEL  (IRBESARTAN) UNKNOWN [Concomitant]
  5. AMLOR  (AMLODIPINE BESILATE) UNKNOWN [Concomitant]
  6. TAHOR  (ATORVASTATIN CALCIUM) UNKNOWN [Concomitant]
  7. MECIR  (TAMSULOSIN HYDROCHLORIDE) UNKNOWN [Concomitant]
  8. HYPERIUM  /00939801/ (RILMENIDINE) UNKNOWN [Concomitant]

REACTIONS (18)
  - ACUTE PULMONARY OEDEMA [None]
  - ALANINE AMINOTRANSFERASE INCREASED [None]
  - AORTIC VALVE CALCIFICATION [None]
  - BLOOD THYROID STIMULATING HORMONE INCREASED [None]
  - DILATATION VENTRICULAR [None]
  - GAMMA-GLUTAMYLTRANSFERASE INCREASED [None]
  - GLYCOSYLATED HAEMOGLOBIN INCREASED [None]
  - HAEMOGLOBIN DECREASED [None]
  - HYPERTENSIVE CRISIS [None]
  - HYPOKINESIA [None]
  - LEFT VENTRICULAR END-DIASTOLIC PRESSURE INCREASED [None]
  - LEFT VENTRICULAR HYPERTROPHY [None]
  - MITRAL VALVE INCOMPETENCE [None]
  - NEPHROANGIOSCLEROSIS [None]
  - PLATELET COUNT INCREASED [None]
  - PULMONARY ARTERIAL PRESSURE INCREASED [None]
  - RENAL FAILURE [None]
  - SUFFOCATION FEELING [None]
